FAERS Safety Report 4868143-6 (Version None)
Quarter: 2005Q4

REPORT INFORMATION
  Report Type: 
  Country: None (occurrence: None)
  Receive Date: 20051229
  Receipt Date: 20051212
  Transmission Date: 20060501
  Serious: Yes (Hospitalization, Other)
  Sender: FDA-Public Use
  Company Number: PHEH2005US13361

PATIENT
  Age: 84 Year
  Sex: Female

DRUGS (9)
  1. ZOMETA [Suspect]
     Indication: BREAST CANCER METASTATIC
     Dosage: UNK QMO
     Route: 042
  2. XELODA [Concomitant]
  3. LEVOTHYROXINE SODIUM [Concomitant]
  4. DIAZEPAM [Concomitant]
  5. OXYBUTYNIN [Concomitant]
  6. HYDROMORPHONE [Concomitant]
  7. PRILOSEC [Concomitant]
  8. ASPIRIN [Concomitant]
  9. ALEVE [Concomitant]

REACTIONS (14)
  - ABSCESS [None]
  - COLONOSCOPY ABNORMAL [None]
  - ERYTHEMA [None]
  - FALL [None]
  - GASTROINTESTINAL HAEMORRHAGE [None]
  - HAEMOGLOBIN DECREASED [None]
  - IMPAIRED HEALING [None]
  - INCISIONAL DRAINAGE [None]
  - MASTICATION DISORDER [None]
  - RECTAL HAEMORRHAGE [None]
  - SWELLING [None]
  - TENDERNESS [None]
  - TOOTH LOSS [None]
  - URINARY TRACT INFECTION [None]
